FAERS Safety Report 15167199 (Version 1)
Quarter: 2018Q3

REPORT INFORMATION
  Report Type: Spontaneous
  Country: IT (occurrence: IT)
  Receive Date: 20180719
  Receipt Date: 20180719
  Transmission Date: 20181010
  Serious: Yes (Hospitalization)
  Sender: FDA-Public Use
  Company Number: IT-ASTRAZENECA-2018SE89301

PATIENT
  Age: 40 Year
  Sex: Male

DRUGS (4)
  1. QUETIAPINE FUMARATE. [Suspect]
     Active Substance: QUETIAPINE FUMARATE
     Indication: DRUG ABUSE
     Dosage: 3.0G ONCE/SINGLE ADMINISTRATION
     Route: 048
     Dates: start: 20180505, end: 20180505
  2. VALIUM [Suspect]
     Active Substance: DIAZEPAM
     Indication: DRUG ABUSE
     Dosage: 10.0ML ONCE/SINGLE ADMINISTRATION
     Route: 048
     Dates: start: 20180505, end: 20180505
  3. RIVOTRIL [Suspect]
     Active Substance: CLONAZEPAM
     Indication: DRUG ABUSE
     Route: 048
     Dates: start: 20180505, end: 20180505
  4. OLANZAPINE. [Suspect]
     Active Substance: OLANZAPINE
     Indication: DRUG ABUSE
     Dosage: 60.0MG ONCE/SINGLE ADMINISTRATION
     Route: 048
     Dates: start: 20180505, end: 20180505

REACTIONS (5)
  - Psychomotor hyperactivity [Recovering/Resolving]
  - Tension [Recovering/Resolving]
  - Vomiting [Recovering/Resolving]
  - Aggression [Recovering/Resolving]
  - Restlessness [Recovering/Resolving]

NARRATIVE: CASE EVENT DATE: 20180505
